FAERS Safety Report 21495064 (Version 1)
Quarter: 2022Q4

REPORT INFORMATION
  Report Type: Spontaneous
  Country: US (occurrence: US)
  Receive Date: 20221022
  Receipt Date: 20221022
  Transmission Date: 20230113
  Serious: No
  Sender: FDA-Public Use
  Company Number: US-ELI_LILLY_AND_COMPANY-US202210010078

PATIENT
  Age: 65 Year
  Sex: Female

DRUGS (1)
  1. TALTZ [Suspect]
     Active Substance: IXEKIZUMAB
     Indication: Product used for unknown indication
     Dosage: 80 MG, UNKNOWN
     Route: 065

REACTIONS (3)
  - Oropharyngeal pain [Unknown]
  - Swollen tongue [Unknown]
  - Sinusitis [Unknown]

NARRATIVE: CASE EVENT DATE: 20220801
